FAERS Safety Report 9750854 (Version 2)
Quarter: 2013Q4

REPORT INFORMATION
  Report Type: Report from Study
  Country: US (occurrence: US)
  Receive Date: 20131212
  Receipt Date: 20131218
  Transmission Date: 20140711
  Serious: Yes (Death, Hospitalization, Other)
  Sender: FDA-Public Use
  Company Number: US-BAXTER-2013BAX049039

PATIENT
  Age: 77 Year
  Sex: Male

DRUGS (2)
  1. GAMMAGARD LIQUID [Suspect]
     Indication: MUSCULAR DYSTROPHY
     Route: 042
     Dates: start: 2000, end: 201305
  2. GAMMAGARD LIQUID [Suspect]
     Indication: OFF LABEL USE

REACTIONS (3)
  - Disease complication [Fatal]
  - Coma [Unknown]
  - Pneumonia [Unknown]
